FAERS Safety Report 7721466-5 (Version None)
Quarter: 2011Q3

REPORT INFORMATION
  Report Type: 
  Country: None (occurrence: None)
  Receive Date: 20110831
  Receipt Date: 20110822
  Transmission Date: 20111222
  Serious: Yes (Other)
  Sender: FDA-Public Use
  Company Number: BR-ASTRAZENECA-2011SE10224

PATIENT
  Age: 33 Year
  Sex: Female
  Weight: 68 kg

DRUGS (5)
  1. SEROQUEL [Suspect]
     Route: 048
     Dates: start: 20110201
  2. GAMALINE V(HERBARIUM) [Concomitant]
     Indication: PREMENSTRUAL SYNDROME
     Route: 048
     Dates: start: 20110101
  3. SEROQUEL [Suspect]
     Indication: BIPOLAR DISORDER
     Dosage: 1/2 TABLET ONCE DAILY
     Route: 048
     Dates: start: 20110201, end: 20110201
  4. FLUOXETINE [Concomitant]
     Indication: BIPOLAR DISORDER
     Dosage: TID
     Route: 048
  5. CLONAZEPAM [Concomitant]
     Indication: BIPOLAR DISORDER
     Route: 048

REACTIONS (4)
  - WRONG TECHNIQUE IN DRUG USAGE PROCESS [None]
  - MIDDLE INSOMNIA [None]
  - NOCTURIA [None]
  - SLEEP-RELATED EATING DISORDER [None]
